FAERS Safety Report 10102226 (Version 2)
Quarter: 2014Q3

REPORT INFORMATION
  Report Type: Spontaneous
  Country: IT (occurrence: IT)
  Receive Date: 20140424
  Receipt Date: 20140714
  Transmission Date: 20150326
  Serious: Yes (Hospitalization)
  Sender: FDA-Public Use
  Company Number: IT-SA-2014SA048236

PATIENT
  Age: 54 Year
  Sex: Male

DRUGS (9)
  1. RENVELA [Concomitant]
     Active Substance: SEVELAMER CARBONATE
     Indication: HYPERPHOSPHATAEMIA
     Route: 048
     Dates: start: 20130515, end: 20140408
  2. SORBISTERIT-CALCIUM [Concomitant]
     Indication: HYPERKALAEMIA
     Dosage: 1 DOSAGE UNIT
     Route: 048
     Dates: start: 20140115, end: 20140408
  3. CARDURA [Concomitant]
     Active Substance: DOXAZOSIN MESYLATE
     Indication: HYPERTENSION
     Route: 048
     Dates: start: 20131115, end: 20140408
  4. BISOPROLOL [Concomitant]
     Active Substance: BISOPROLOL
     Indication: HYPERTENSION
     Route: 048
     Dates: start: 20131115, end: 20140408
  5. IPERTEN [Concomitant]
     Active Substance: MANIDIPINE
     Indication: HYPERTENSION
     Route: 048
     Dates: start: 20131115, end: 20140408
  6. FERLIXIT [Suspect]
     Active Substance: FERROUS GLUCONATE
     Indication: IRON DEFICIENCY ANAEMIA
     Dosage: FORM: SOLUTION FOR ORAL USE AND OPERATION IV
     Route: 042
     Dates: start: 20090206, end: 20140404
  7. TRIATEC [Concomitant]
     Active Substance: RAMIPRIL
     Indication: HYPERTENSION
     Route: 048
     Dates: start: 20131028, end: 20140408
  8. PARIET [Concomitant]
     Active Substance: RABEPRAZOLE SODIUM
     Indication: GASTRIC ULCER
     Route: 048
     Dates: start: 20101126, end: 20140408
  9. CALCIUM ASCORBATE/MAGNESIUM OXIDE/CALCIUM CARBONATE/FERROUS FUMARATE/TOCOPHERYL ACETATE/THIAMINE MON [Concomitant]
     Indication: HYPERPHOSPHATAEMIA
     Dosage: 2 DOSAGE UNIT
     Route: 048
     Dates: start: 20130515, end: 20140408

REACTIONS (4)
  - Pruritus [Recovered/Resolved]
  - Skin warm [Recovered/Resolved]
  - Hypotension [Recovered/Resolved]
  - Dysphonia [Recovered/Resolved]

NARRATIVE: CASE EVENT DATE: 20140404
